FAERS Safety Report 13535842 (Version 5)
Quarter: 2017Q4

REPORT INFORMATION
  Report Type: Report from Study
  Country: CO (occurrence: CO)
  Receive Date: 20170511
  Receipt Date: 20171013
  Transmission Date: 20180320
  Serious: Yes (Hospitalization, Other)
  Sender: FDA-Public Use
  Company Number: CO-AMGEN-COLSL2017070476

PATIENT
  Age: 65 Year
  Sex: Male

DRUGS (2)
  1. VECTIBIX [Suspect]
     Active Substance: PANITUMUMAB
     Indication: COLORECTAL CANCER METASTATIC
     Dosage: 450 MG, Q2WK (BIWEEKLY)
     Route: 042
     Dates: start: 20170222, end: 2017
  2. VECTIBIX [Suspect]
     Active Substance: PANITUMUMAB
     Dosage: 450 MG, Q2WK (BIWEEKLY)
     Route: 042
     Dates: start: 2017, end: 2017

REACTIONS (4)
  - Arrhythmia [Not Recovered/Not Resolved]
  - Adverse event [Not Recovered/Not Resolved]
  - Device occlusion [Not Recovered/Not Resolved]
  - Metastases to liver [Not Recovered/Not Resolved]

NARRATIVE: CASE EVENT DATE: 20170424
